FAERS Safety Report 15747171 (Version 1)
Quarter: 2018Q4

REPORT INFORMATION
  Report Type: Report from Study
  Country: CA (occurrence: CA)
  Receive Date: 20181220
  Receipt Date: 20181220
  Transmission Date: 20190205
  Serious: Yes (Hospitalization, Other)
  Sender: FDA-Public Use
  Company Number: CA-JNJFOC-20181132083

PATIENT
  Age: 53 Year
  Sex: Male
  Weight: 82 kg

DRUGS (1)
  1. DARZALEX [Suspect]
     Active Substance: DARATUMUMAB
     Indication: PLASMA CELL MYELOMA
     Dosage: STRENGTH = 400 MG
     Route: 042
     Dates: start: 20181121

REACTIONS (17)
  - Febrile neutropenia [Unknown]
  - Blood count abnormal [Unknown]
  - Myalgia [Recovering/Resolving]
  - Bone pain [Recovering/Resolving]
  - Malaise [Recovered/Resolved]
  - Lethargy [Recovered/Resolved]
  - Balance disorder [Recovering/Resolving]
  - Throat irritation [Unknown]
  - Pyrexia [Recovering/Resolving]
  - Seasonal allergy [Unknown]
  - Tremor [Recovering/Resolving]
  - Infusion related reaction [Unknown]
  - Hypotension [Not Recovered/Not Resolved]
  - Urticaria [Unknown]
  - Asthenia [Recovering/Resolving]
  - Dehydration [Not Recovered/Not Resolved]
  - Weight decreased [Not Recovered/Not Resolved]

NARRATIVE: CASE EVENT DATE: 201812
